FAERS Safety Report 8171157-4 (Version None)
Quarter: 2012Q1

REPORT INFORMATION
  Report Type: 
  Country: None (occurrence: None)
  Receive Date: 20120228
  Receipt Date: 20111128
  Transmission Date: 20120608
  Serious: No
  Sender: FDA-Public Use
  Company Number: US-BRISTOL-MYERS SQUIBB COMPANY-16227928

PATIENT
  Age: 66 Year
  Sex: Female
  Weight: 87 kg

DRUGS (22)
  1. LISINOPRIL [Concomitant]
  2. LIVALO [Concomitant]
  3. FLEXERIL [Concomitant]
     Dosage: 1 DF= 1TAB AT QHS
  4. VESICARE [Concomitant]
  5. UBIQUINONE-50 [Concomitant]
     Dosage: FORM CO-Q10
  6. ONGLYZA [Suspect]
     Indication: TYPE 2 DIABETES MELLITUS
     Dates: start: 20110901
  7. CELEXA [Concomitant]
  8. FISH OIL [Concomitant]
     Dosage: TAB
  9. LEVEMIR [Concomitant]
     Dosage: 1 DF=100 UNITS/ML
  10. NATEGLINIDE [Concomitant]
  11. CARVEDILOL [Concomitant]
  12. PRAVACHOL [Concomitant]
     Dosage: ONCE A DAY AT BED TIME
  13. GEMFIBROZIL [Concomitant]
  14. IBUPROFEN [Concomitant]
  15. NIACIN [Concomitant]
  16. XANAX [Concomitant]
     Dosage: 1 TAB PER DAY
  17. MIRAPEX [Concomitant]
  18. METFORMIN HCL [Concomitant]
  19. LEVOTHYROXINE SODIUM [Concomitant]
  20. SAVELLA [Concomitant]
  21. FENOFIBRATE [Concomitant]
  22. PRADAXA [Concomitant]
     Dosage: CAPS

REACTIONS (1)
  - VERTIGO [None]
